FAERS Safety Report 11626405 (Version 1)
Quarter: 2015Q4

REPORT INFORMATION
  Report Type: Spontaneous
  Country: US (occurrence: US)
  Receive Date: 20151013
  Receipt Date: 20151013
  Transmission Date: 20160304
  Serious: No
  Sender: FDA-Public Use
  Company Number: US-ROCHE-1603019

PATIENT
  Sex: Male
  Weight: 81.27 kg

DRUGS (1)
  1. ZELBORAF [Suspect]
     Active Substance: VEMURAFENIB
     Indication: MALIGNANT MELANOMA
     Dosage: 4 EVERYDAY
     Route: 048
     Dates: start: 20150511

REACTIONS (2)
  - Rash [Unknown]
  - Myalgia [Unknown]
